FAERS Safety Report 8248028-8 (Version None)
Quarter: 2012Q1

REPORT INFORMATION
  Report Type: 
  Country: None (occurrence: None)
  Receive Date: 20120330
  Receipt Date: 20120313
  Transmission Date: 20120608
  Serious: No
  Sender: FDA-Public Use
  Company Number: US-ENDO PHARMACEUTICALS INC.-OPER20120368

PATIENT
  Sex: Female

DRUGS (5)
  1. OPANA ER [Concomitant]
     Indication: PAIN
     Route: 048
     Dates: start: 20120201
  2. OPANA ER [Suspect]
     Indication: PAIN
     Route: 048
  3. OPANA ER [Suspect]
     Route: 048
  4. OPANA [Suspect]
     Indication: PAIN
     Route: 048
  5. PERCOCET [Suspect]
     Indication: PAIN
     Dosage: UNKNOWN
     Route: 048

REACTIONS (2)
  - DRUG INEFFECTIVE [None]
  - INAPPROPRIATE SCHEDULE OF DRUG ADMINISTRATION [None]
